FAERS Safety Report 8438119-0 (Version None)
Quarter: 2012Q2

REPORT INFORMATION
  Report Type: 
  Country: None (occurrence: None)
  Receive Date: 20120614
  Receipt Date: 20120608
  Transmission Date: 20120825
  Serious: Yes (Congenital Anomaly, Other)
  Sender: FDA-Public Use
  Company Number: GXKR2012DE001957

PATIENT

DRUGS (3)
  1. LAMOTRIGINE [Suspect]
     Dosage: MATERNAL DOSE: 650 [MG/D ]/ 300MG-0-350MG
     Route: 064
     Dates: start: 20110409, end: 20120113
  2. LEUCOVORIN CALCIUM [Concomitant]
     Dosage: MATERNAL DOSE: 0.4 [MG/D ]
     Route: 064
     Dates: start: 20110409, end: 20120113
  3. LEVOTHYROXINE SODIUM [Concomitant]
     Dosage: MATERNAL DOSE: 50 UG, QD
     Route: 064
     Dates: start: 20110409, end: 20120113

REACTIONS (5)
  - SOMNOLENCE [None]
  - FOETAL EXPOSURE DURING PREGNANCY [None]
  - CONGENITAL TONGUE ANOMALY [None]
  - HIP DYSPLASIA [None]
  - POOR WEIGHT GAIN NEONATAL [None]
